FAERS Safety Report 9374715 (Version 1)
Quarter: 2013Q2

REPORT INFORMATION
  Report Type: Report from Study
  Country: CA (occurrence: CA)
  Receive Date: 20130628
  Receipt Date: 20130628
  Transmission Date: 20140414
  Serious: Yes (Death)
  Sender: FDA-Public Use
  Company Number: CA-ROCHE-1241252

PATIENT
  Sex: Female
  Weight: 102 kg

DRUGS (7)
  1. AVASTIN [Suspect]
     Indication: GLIOBLASTOMA
     Route: 042
     Dates: start: 20121128, end: 20121128
  2. PARIET [Concomitant]
  3. GABAPENTIN [Concomitant]
  4. CLOBAZAM [Concomitant]
  5. CIPRALEX [Concomitant]
  6. DEXAMETHASONE [Concomitant]
  7. THYROXINE [Concomitant]

REACTIONS (1)
  - Disease progression [Fatal]
